FAERS Safety Report 17764260 (Version 7)
Quarter: 2022Q4

REPORT INFORMATION
  Report Type: Report from Study
  Country: US (occurrence: None)
  Receive Date: 20200511
  Receipt Date: 20221209
  Transmission Date: 20230112
  Serious: Yes (Death, Hospitalization, Other)
  Sender: FDA-Public Use
  Company Number: US-ROCHE-2594767

PATIENT
  Age: 84 Year
  Sex: Male
  Weight: 78 kg

DRUGS (65)
  1. ATEZOLIZUMAB [Suspect]
     Active Substance: ATEZOLIZUMAB
     Indication: Adenocarcinoma of colon
     Dosage: THE DATE OF LAST DOSE OF ATEZOLIZUMAB PRIOR TO EVENT ONSET: 02/MAR/2020.
     Route: 041
     Dates: start: 20191216
  2. OXALIPLATIN [Suspect]
     Active Substance: OXALIPLATIN
     Indication: Adenocarcinoma of colon
     Dosage: OVER 2 HOURS ON DAY 1
     Route: 042
     Dates: start: 20191216
  3. LEUCOVORIN CALCIUM [Suspect]
     Active Substance: LEUCOVORIN CALCIUM
     Indication: Adenocarcinoma of colon
     Route: 042
  4. FLUOROURACIL [Suspect]
     Active Substance: FLUOROURACIL
     Indication: Adenocarcinoma of colon
     Dosage: ON DAY 1 FOLLOWED BY 2400MG/M2 IV OVER 46 HOURS DAYS 1-3
     Route: 040
  5. TYLENOL [Concomitant]
     Active Substance: ACETAMINOPHEN
     Dates: start: 20200420
  6. TYLENOL [Concomitant]
     Active Substance: ACETAMINOPHEN
     Dates: start: 20200418, end: 20200419
  7. LORAZEPAM [Concomitant]
     Active Substance: LORAZEPAM
     Dates: start: 20200418
  8. MORPHINE [Concomitant]
     Active Substance: MORPHINE
     Dates: start: 20200418
  9. MORPHINE [Concomitant]
     Active Substance: MORPHINE
     Dates: start: 20200420, end: 20200420
  10. MORPHINE [Concomitant]
     Active Substance: MORPHINE
     Route: 042
     Dates: start: 20200420, end: 20200420
  11. MORPHINE [Concomitant]
     Active Substance: MORPHINE
     Route: 042
     Dates: start: 20200420, end: 20200420
  12. MORPHINE [Concomitant]
     Active Substance: MORPHINE
     Route: 042
     Dates: start: 20200419, end: 20200420
  13. MORPHINE [Concomitant]
     Active Substance: MORPHINE
     Route: 042
     Dates: start: 20200419, end: 20200419
  14. MORPHINE [Concomitant]
     Active Substance: MORPHINE
     Route: 042
     Dates: start: 20200418, end: 20200420
  15. MORPHINE [Concomitant]
     Active Substance: MORPHINE
     Route: 042
     Dates: start: 20200418, end: 20200419
  16. MORPHINE [Concomitant]
     Active Substance: MORPHINE
     Route: 042
     Dates: start: 20200418, end: 20200418
  17. MORPHINE [Concomitant]
     Active Substance: MORPHINE
     Dates: start: 20200420, end: 20200421
  18. MORPHINE [Concomitant]
     Active Substance: MORPHINE
     Dates: start: 20200420, end: 20200421
  19. ROCEPHIN [Concomitant]
     Active Substance: CEFTRIAXONE SODIUM
     Dates: start: 20200418, end: 20200420
  20. ROCEPHIN [Concomitant]
     Active Substance: CEFTRIAXONE SODIUM
     Dates: start: 20200406, end: 20200406
  21. VIBRAMYCIN [Concomitant]
     Active Substance: DOXYCYCLINE
     Dates: start: 20200418, end: 20200420
  22. VIBRAMYCIN [Concomitant]
     Active Substance: DOXYCYCLINE
     Dates: start: 20200406, end: 20200406
  23. LOVENOX [Concomitant]
     Active Substance: ENOXAPARIN SODIUM
     Dates: start: 20200418, end: 20200420
  24. LOVENOX [Concomitant]
     Active Substance: ENOXAPARIN SODIUM
     Dates: start: 20200418, end: 20200418
  25. ROBINUL [Concomitant]
     Active Substance: GLYCOPYRROLATE
     Dates: start: 20200420, end: 20200420
  26. ROBINUL [Concomitant]
     Active Substance: GLYCOPYRROLATE
     Dates: start: 20200418, end: 20200418
  27. ROBINUL [Concomitant]
     Active Substance: GLYCOPYRROLATE
     Dates: start: 20200420, end: 20200421
  28. HALDOL [Concomitant]
     Active Substance: HALOPERIDOL
     Dates: start: 20200419, end: 20200420
  29. HALDOL [Concomitant]
     Active Substance: HALOPERIDOL
     Dates: start: 20200420, end: 20200420
  30. HALDOL [Concomitant]
     Active Substance: HALOPERIDOL
     Dates: start: 20200420, end: 20200421
  31. FLUZONE HIGH-DOSE NOS [Concomitant]
     Active Substance: INFLUENZA A VIRUS A/CALIFORNIA/7/2009 X-179A (H1N1) ANTIGEN (FORMALDEHYDE INACTIVATED)\INFLUENZA A V
     Route: 030
     Dates: start: 20200418, end: 20200418
  32. SYNTHROID [Concomitant]
     Active Substance: LEVOTHYROXINE SODIUM
     Dosage: 75 MCG
     Route: 048
     Dates: start: 20200418, end: 20200419
  33. SYNTHROID [Concomitant]
     Active Substance: LEVOTHYROXINE SODIUM
     Dosage: 75 MCG
     Route: 048
     Dates: start: 20200418, end: 20200419
  34. SYNTHROID [Concomitant]
     Active Substance: LEVOTHYROXINE SODIUM
     Dates: start: 20200408, end: 20200408
  35. LISINOPRIL [Concomitant]
     Active Substance: LISINOPRIL
     Dates: start: 20200418, end: 20200418
  36. ATIVAN [Concomitant]
     Active Substance: LORAZEPAM
     Dosage: 2 MG/ML
     Dates: start: 20200419, end: 20200420
  37. ATIVAN [Concomitant]
     Active Substance: LORAZEPAM
     Dates: start: 20200419, end: 20200419
  38. ATIVAN [Concomitant]
     Active Substance: LORAZEPAM
     Dates: start: 20200419, end: 20200420
  39. ATIVAN [Concomitant]
     Active Substance: LORAZEPAM
     Dates: start: 20200420, end: 20200421
  40. MELATONIN [Concomitant]
     Active Substance: MELATONIN
     Route: 048
     Dates: start: 20200418, end: 20200420
  41. RELISTOR [Concomitant]
     Active Substance: METHYLNALTREXONE BROMIDE
     Route: 058
     Dates: start: 20200419, end: 20200420
  42. SOLU-MEDROL [Concomitant]
     Active Substance: METHYLPREDNISOLONE SODIUM SUCCINATE
     Dates: start: 20200418, end: 20200420
  43. REGLAN [Concomitant]
     Active Substance: METOCLOPRAMIDE HYDROCHLORIDE
     Route: 042
     Dates: start: 20200418, end: 20200419
  44. REGLAN [Concomitant]
     Active Substance: METOCLOPRAMIDE HYDROCHLORIDE
     Route: 042
     Dates: start: 20200418, end: 20200418
  45. ROXICODONE [Concomitant]
     Active Substance: OXYCODONE HYDROCHLORIDE
     Route: 048
     Dates: start: 20200418, end: 20200420
  46. MORPHINE SULFATE [Concomitant]
     Active Substance: MORPHINE SULFATE
     Dates: start: 20200420, end: 20200420
  47. MIRALAX [Concomitant]
     Active Substance: POLYETHYLENE GLYCOL 3350
     Dates: start: 20200419, end: 20200419
  48. MIRALAX [Concomitant]
     Active Substance: POLYETHYLENE GLYCOL 3350
     Dates: start: 20200418, end: 20200419
  49. DELTASONE [Concomitant]
     Active Substance: PREDNISONE
     Dates: start: 20200418, end: 20200418
  50. SENOKOT [Concomitant]
     Active Substance: SENNOSIDES
     Dates: start: 20200418, end: 20200420
  51. SENOKOT [Concomitant]
     Active Substance: SENNOSIDES
     Dates: start: 20200418, end: 20200419
  52. FLOMAX [Concomitant]
     Active Substance: TAMSULOSIN HYDROCHLORIDE
     Dates: start: 20200418, end: 20200420
  53. TYLENOL [Concomitant]
     Active Substance: ACETAMINOPHEN
     Dates: start: 20200417, end: 20200417
  54. TYLENOL [Concomitant]
     Active Substance: ACETAMINOPHEN
     Dates: start: 20200407, end: 20200407
  55. TYLENOL [Concomitant]
     Active Substance: ACETAMINOPHEN
     Dates: start: 20200418, end: 20200419
  56. CINVANTI [Concomitant]
     Active Substance: APREPITANT
     Dates: start: 20200218, end: 20200218
  57. ASPIRIN [Concomitant]
     Active Substance: ASPIRIN
     Route: 048
     Dates: start: 20200417, end: 20200417
  58. DECADRON [Concomitant]
     Active Substance: DEXAMETHASONE
     Dates: start: 20200302, end: 20200302
  59. DECADRON [Concomitant]
     Active Substance: DEXAMETHASONE
     Dates: start: 20200218, end: 20200218
  60. DECADRON [Concomitant]
     Active Substance: DEXAMETHASONE
     Dates: start: 20200203, end: 20200203
  61. AQUAPHOR (UNITED STATES) [Concomitant]
     Dates: start: 20200420, end: 20200420
  62. ONDANSETRON [Concomitant]
     Active Substance: ONDANSETRON
     Dates: start: 20200302, end: 20200302
  63. ELOXATIN [Concomitant]
     Active Substance: OXALIPLATIN
     Dates: start: 20200218, end: 20200218
  64. ELOXATIN [Concomitant]
     Active Substance: OXALIPLATIN
     Dates: start: 20200203, end: 20200203
  65. ALOXI [Concomitant]
     Active Substance: PALONOSETRON HYDROCHLORIDE
     Dates: start: 20200218, end: 20200218

REACTIONS (22)
  - Pneumonia [Fatal]
  - COVID-19 [Unknown]
  - Hyponatraemia [Recovered/Resolved]
  - Fatigue [Not Recovered/Not Resolved]
  - Insomnia [Recovered/Resolved]
  - Weight decreased [Recovered/Resolved]
  - Decreased appetite [Recovered/Resolved]
  - Erythema [Recovered/Resolved]
  - Dry skin [Recovered/Resolved]
  - Abdominal pain [Recovered/Resolved]
  - Nausea [Recovered/Resolved]
  - Constipation [Recovered/Resolved]
  - Pollakiuria [Recovered/Resolved]
  - Urinary tract infection [Recovered/Resolved]
  - Back pain [Recovered/Resolved]
  - Gait disturbance [Recovered/Resolved]
  - Paraesthesia [Recovered/Resolved]
  - Anxiety [Recovered/Resolved]
  - Blood alkaline phosphatase increased [Recovered/Resolved]
  - Alanine aminotransferase increased [Recovered/Resolved]
  - Aspartate aminotransferase increased [Recovered/Resolved]
  - Insomnia [Recovered/Resolved]

NARRATIVE: CASE EVENT DATE: 20191216
